FAERS Safety Report 14282734 (Version 1)
Quarter: 2017Q4

REPORT INFORMATION
  Report Type: Spontaneous
  Country: US (occurrence: US)
  Receive Date: 20171213
  Receipt Date: 20171213
  Transmission Date: 20180321
  Serious: Yes (Hospitalization)
  Sender: FDA-Public Use
  Company Number: US-INCYTE CORPORATION-2017IN010493

PATIENT
  Age: 11 Year
  Sex: Female

DRUGS (1)
  1. JAKAFI [Suspect]
     Active Substance: RUXOLITINIB
     Indication: GENE MUTATION
     Dosage: UNK
     Route: 065

REACTIONS (5)
  - Pneumonia viral [Unknown]
  - Metapneumovirus infection [Unknown]
  - Product use in unapproved indication [Unknown]
  - Herpes zoster [Unknown]
  - Drug administered to patient of inappropriate age [Unknown]
